FAERS Safety Report 6088537-3 (Version None)
Quarter: 2009Q1

REPORT INFORMATION
  Report Type: 
  Country: None (occurrence: None)
  Receive Date: 20090220
  Receipt Date: 20090220
  Transmission Date: 20090719
  Serious: Yes (Life-Threatening, Hospitalization)
  Sender: FDA-Public Use
  Company Number: None

PATIENT
  Sex: Male
  Weight: 88.4514 kg

DRUGS (1)
  1. SIMVASTATIN [Suspect]
     Indication: BLOOD CHOLESTEROL
     Dosage: ONE TABLET DAILY AT BEDTIME PO
     Route: 048
     Dates: start: 20080709, end: 20080810

REACTIONS (4)
  - MOBILITY DECREASED [None]
  - MUSCLE DISORDER [None]
  - RENAL IMPAIRMENT [None]
  - WEIGHT DECREASED [None]
